FAERS Safety Report 18390654 (Version 14)
Quarter: 2021Q4

REPORT INFORMATION
  Report Type: Spontaneous
  Country: CA (occurrence: CA)
  Receive Date: 20201016
  Receipt Date: 20211109
  Transmission Date: 20220303
  Serious: Yes (Other)
  Sender: FDA-Public Use
  Company Number: CA-CELLTRION INC.-2020CA023886

PATIENT

DRUGS (24)
  1. INFLECTRA [Suspect]
     Active Substance: INFLIXIMAB-DYYB
     Indication: Colitis ulcerative
     Dosage: 10 MG/KG, EVERY 6 WEEKS
     Route: 042
     Dates: start: 20200621
  2. INFLECTRA [Suspect]
     Active Substance: INFLIXIMAB-DYYB
     Dosage: 10 MG/KG 0, 1, 6 WEEKS THEN 5 MG/KG EVERY 8 WEEKS
     Route: 042
     Dates: start: 20200621, end: 20200728
  3. INFLECTRA [Suspect]
     Active Substance: INFLIXIMAB-DYYB
     Dosage: 10 MG/KG, 6 DAYS AFTER THE PREVIOUS INFUSION
     Route: 042
     Dates: start: 20200627
  4. INFLECTRA [Suspect]
     Active Substance: INFLIXIMAB-DYYB
     Dosage: 10 MG/KG, EVERY 6 WEEKS
     Route: 042
     Dates: start: 20200728
  5. INFLECTRA [Suspect]
     Active Substance: INFLIXIMAB-DYYB
     Dosage: 10 MG/KG, EVERY 6 WEEKS
     Route: 042
     Dates: start: 20200728
  6. INFLECTRA [Suspect]
     Active Substance: INFLIXIMAB-DYYB
     Dosage: 5 MG/KG RESCUE DOSE
     Route: 042
     Dates: start: 20200923, end: 20201007
  7. INFLECTRA [Suspect]
     Active Substance: INFLIXIMAB-DYYB
     Dosage: 5 MG/KG (10 MG/KG 0, 1, 6 WEEKS THEN 5 MG/KG EVERY 8 WEEKS)
     Route: 042
     Dates: start: 20200923
  8. INFLECTRA [Suspect]
     Active Substance: INFLIXIMAB-DYYB
     Dosage: 5 MG/KG (10 MG/KG 0, 1, 6 WEEKS THEN 5 MG/KG EVERY 8WEEKS)
     Route: 042
     Dates: start: 20201007
  9. INFLECTRA [Suspect]
     Active Substance: INFLIXIMAB-DYYB
     Dosage: 5 MG/KG (10 MG/KG 0, 1, 6 WEEKS THEN 5 MG/KG EVERY 8WEEKS)
     Route: 042
     Dates: start: 20201118, end: 20201118
  10. INFLECTRA [Suspect]
     Active Substance: INFLIXIMAB-DYYB
     Dosage: 200 MG EVERY 8 WEEKS(5 MG/KG )
     Route: 042
     Dates: start: 20201118
  11. INFLECTRA [Suspect]
     Active Substance: INFLIXIMAB-DYYB
     Dosage: 200 MG EVERY 8 WEEKS(5 MG/KG )
     Route: 042
     Dates: start: 20201118
  12. INFLECTRA [Suspect]
     Active Substance: INFLIXIMAB-DYYB
     Dosage: 200 MG EVERY 8 WEEKS
     Route: 042
     Dates: start: 20210113
  13. INFLECTRA [Suspect]
     Active Substance: INFLIXIMAB-DYYB
     Dosage: 200 MG EVERY 8 WEEKS
     Route: 042
     Dates: start: 20210311
  14. INFLECTRA [Suspect]
     Active Substance: INFLIXIMAB-DYYB
     Dosage: 200 MG EVERY 8 WEEKS
     Route: 042
     Dates: start: 20210311
  15. INFLECTRA [Suspect]
     Active Substance: INFLIXIMAB-DYYB
     Dosage: 300 MG (RESCUE DOSE)
     Dates: start: 20210326
  16. INFLECTRA [Suspect]
     Active Substance: INFLIXIMAB-DYYB
     Dosage: 500 MG, 1X/4 WEEKS, DOSE ASAP TO COMPLETE DOSE (5 MG/KG) TO 10MG/KG, THEN EVERY 4 WEEKS AT 10 MG/KG
     Dates: start: 20210326
  17. INFLECTRA [Suspect]
     Active Substance: INFLIXIMAB-DYYB
     Dosage: UNK
     Route: 042
     Dates: start: 20210416
  18. INFLECTRA [Suspect]
     Active Substance: INFLIXIMAB-DYYB
     Dosage: 500 MG, 1X/4 WEEKS
     Route: 042
     Dates: start: 20210520
  19. INFLECTRA [Suspect]
     Active Substance: INFLIXIMAB-DYYB
     Dosage: 500 MG, 1X/4 WEEKS
     Route: 042
     Dates: start: 20210617
  20. INFLECTRA [Suspect]
     Active Substance: INFLIXIMAB-DYYB
     Dosage: 500 MG, 1X/4 WEEKS
     Route: 042
     Dates: start: 20210716
  21. INFLECTRA [Suspect]
     Active Substance: INFLIXIMAB-DYYB
     Dosage: 500 MG, 1X/4 WEEKS
     Route: 042
     Dates: start: 20210818
  22. INFLECTRA [Suspect]
     Active Substance: INFLIXIMAB-DYYB
     Dosage: 500 MG, 1X/4 WEEKS
     Route: 042
     Dates: start: 20210916
  23. CORTISONE [Concomitant]
     Active Substance: CORTISONE
     Dosage: 1 DF, DOSAGE NOT AVAILABLE
  24. MESALAMINE [Concomitant]
     Active Substance: MESALAMINE
     Dosage: 4.8 G, ONCE DAILY

REACTIONS (18)
  - Clostridium difficile infection [Unknown]
  - Condition aggravated [Not Recovered/Not Resolved]
  - Crohn^s disease [Unknown]
  - Drug ineffective [Unknown]
  - Off label use [Unknown]
  - Intentional product use issue [Unknown]
  - Off label use [Unknown]
  - Off label use [Unknown]
  - Alopecia [Unknown]
  - Amenorrhoea [Unknown]
  - Blood pressure fluctuation [Unknown]
  - Dizziness [Recovered/Resolved]
  - Heart rate decreased [Unknown]
  - Malaise [Not Recovered/Not Resolved]
  - Psoriasis [Unknown]
  - Rash macular [Unknown]
  - Rash [Unknown]
  - Blood pressure decreased [Unknown]

NARRATIVE: CASE EVENT DATE: 20200621
